FAERS Safety Report 20422364 (Version 1)
Quarter: 2022Q1

REPORT INFORMATION
  Report Type: Spontaneous
  Country: TH (occurrence: TH)
  Receive Date: 20220203
  Receipt Date: 20220203
  Transmission Date: 20220424
  Serious: Yes (Life-Threatening, Other)
  Sender: FDA-Public Use
  Company Number: TH-SLATE RUN PHARMACEUTICALS-22TH000879

PATIENT

DRUGS (8)
  1. AZITHROMYCIN [Suspect]
     Active Substance: AZITHROMYCIN
     Indication: Pneumonia viral
     Dosage: 500 MILLIGRAM, QD
     Route: 042
  2. CEFTRIAXONE [Concomitant]
     Active Substance: CEFTRIAXONE
     Indication: Arthritis viral
     Dosage: 2 GRAM, QD
     Route: 042
  3. UNSPECIFIED INGREDIENT [Concomitant]
     Active Substance: UNSPECIFIED INGREDIENT
     Indication: Hypotension
  4. MEROPENEM [Concomitant]
     Active Substance: MEROPENEM
     Indication: Arthritis viral
     Dosage: 1 GRAM, Q 8 HR
     Route: 042
  5. OXYGEN [Concomitant]
     Active Substance: OXYGEN
     Indication: Product used for unknown indication
     Dosage: 10 L/MINUTE, NONREBREATHER MASK
  6. NOREPINEPHRINE [Concomitant]
     Active Substance: NOREPINEPHRINE
     Indication: Hypotension
  7. OSELTAMIVIR [Concomitant]
     Active Substance: OSELTAMIVIR
     Indication: Pneumonia viral
     Dosage: 75 MILLIGRAM, BID
  8. OSELTAMIVIR [Concomitant]
     Active Substance: OSELTAMIVIR
     Indication: Tropical infectious disease

REACTIONS (5)
  - Acute respiratory distress syndrome [Recovered/Resolved]
  - Rash vesicular [Recovering/Resolving]
  - Blister [Unknown]
  - Tissue infiltration [Unknown]
  - Maternal exposure during pregnancy [Recovered/Resolved]
